FAERS Safety Report 9374400 (Version 1)
Quarter: 2013Q2

REPORT INFORMATION
  Report Type: Spontaneous
  Country: US (occurrence: US)
  Receive Date: 20130628
  Receipt Date: 20130628
  Transmission Date: 20140414
  Serious: No
  Sender: FDA-Public Use
  Company Number: US-PFIZER INC-2013190346

PATIENT
  Age: 58 Year
  Sex: Male
  Weight: 77.1 kg

DRUGS (3)
  1. VFEND [Suspect]
     Indication: ASPERGILLUS INFECTION
     Dosage: 200 MG, 2X/DAY
     Dates: start: 201211
  2. LEXAPRO [Concomitant]
     Dosage: 20 MG, DAILY
  3. PRILOSEC [Concomitant]
     Indication: GASTROINTESTINAL DISORDER
     Dosage: 40 MG, AS NEEDED

REACTIONS (1)
  - Blood alkaline phosphatase increased [Unknown]
